FAERS Safety Report 17912760 (Version 2)
Quarter: 2020Q2

REPORT INFORMATION
  Report Type: Spontaneous
  Country: JP (occurrence: JP)
  Receive Date: 20200618
  Receipt Date: 20200625
  Transmission Date: 20200714
  Serious: Yes (Hospitalization)
  Sender: FDA-Public Use
  Company Number: JP-SAKK-2020SA153324AA

PATIENT

DRUGS (6)
  1. LANTUS SOLOSTAR [Suspect]
     Active Substance: INSULIN GLARGINE
     Dosage: 18 UNITS IN THE MORNING
     Route: 058
     Dates: start: 20200616
  2. APIDRA SOLOSTAR [Suspect]
     Active Substance: INSULIN GLULISINE
     Dosage: UNK
     Route: 058
     Dates: start: 20200615, end: 20200615
  3. LANTUS SOLOSTAR [Suspect]
     Active Substance: INSULIN GLARGINE
     Dosage: 36 UNITS IN THE MORNING
     Route: 058
     Dates: start: 20200615, end: 20200615
  4. LANTUS SOLOSTAR [Suspect]
     Active Substance: INSULIN GLARGINE
     Indication: TYPE 1 DIABETES MELLITUS
     Dosage: 18 UNITS IN THE MORNING
     Route: 058
  5. APIDRA SOLOSTAR [Suspect]
     Active Substance: INSULIN GLULISINE
     Dosage: 4 UNITS IN THE MORNING
     Route: 058
     Dates: start: 20200616
  6. APIDRA SOLOSTAR [Suspect]
     Active Substance: INSULIN GLULISINE
     Indication: TYPE 1 DIABETES MELLITUS
     Dosage: 6 UNITS IN THE MORNING
     Route: 058

REACTIONS (8)
  - Blood glucose increased [Unknown]
  - Wrong product administered [Unknown]
  - Hypoglycaemia [Recovered/Resolved]
  - Hypoglycaemia [Unknown]
  - Thyroiditis [Unknown]
  - Blood glucose increased [Recovered/Resolved]
  - Cold sweat [Recovered/Resolved]
  - Therapeutic product effect incomplete [Unknown]

NARRATIVE: CASE EVENT DATE: 202004
